FAERS Safety Report 16065430 (Version 3)
Quarter: 2019Q4

REPORT INFORMATION
  Report Type: Report from Study
  Country: US (occurrence: US)
  Receive Date: 20190313
  Receipt Date: 20191018
  Transmission Date: 20200122
  Serious: Yes (Hospitalization, Other)
  Sender: FDA-Public Use
  Company Number: US-SAKK-2019SA062578AA

PATIENT
  Age: 74 Year
  Sex: Male

DRUGS (3)
  1. NOVOLOG [Concomitant]
     Active Substance: INSULIN ASPART
  2. PENICILLINE [BENZYLPENICILLIN] [Concomitant]
     Active Substance: PENICILLIN G
     Dosage: 325 MG, QD
  3. INSULIN GLARGINE [Suspect]
     Active Substance: INSULIN GLARGINE
     Indication: TYPE 2 DIABETES MELLITUS
     Dosage: 60 U,ONCE DAILY AT NIGHT
     Route: 058

REACTIONS (11)
  - Drug delivery system issue [Unknown]
  - Influenza [Recovering/Resolving]
  - Headache [Unknown]
  - Hypertension [Unknown]
  - Blood cholesterol abnormal [Unknown]
  - Incorrect dose administered [Unknown]
  - Dehydration [Recovering/Resolving]
  - Product dose omission [Unknown]
  - Chronic kidney disease [Unknown]
  - Hyperhidrosis [Unknown]
  - Blood glucose decreased [Not Recovered/Not Resolved]

NARRATIVE: CASE EVENT DATE: 20190222
